FAERS Safety Report 19553977 (Version 2)
Quarter: 2021Q3

REPORT INFORMATION
  Report Type: Report from Study
  Country: US (occurrence: US)
  Receive Date: 20210715
  Receipt Date: 20210811
  Transmission Date: 20211014
  Serious: Yes (Other)
  Sender: FDA-Public Use
  Company Number: US-GLAXOSMITHKLINE-US2021AMR083392

PATIENT
  Age: 85 Year
  Sex: Female
  Weight: 62.14 kg

DRUGS (5)
  1. NIRAPARIB [Suspect]
     Active Substance: NIRAPARIB
     Dosage: 200 MG, QD
     Route: 048
  2. NIRAPARIB [Suspect]
     Active Substance: NIRAPARIB
     Indication: OVARIAN CANCER
     Dosage: 200 MG, QD
     Dates: start: 20210409
  3. NIRAPARIB [Suspect]
     Active Substance: NIRAPARIB
     Dosage: 200 MG, QD
     Route: 048
  4. NIRAPARIB [Suspect]
     Active Substance: NIRAPARIB
     Dosage: 200 MG, QD
     Route: 048
  5. GABAPENTIN. [Concomitant]
     Active Substance: GABAPENTIN
     Indication: PRODUCT USED FOR UNKNOWN INDICATION
     Dosage: 300 MG, QD (QPM)

REACTIONS (15)
  - Vaginal haemorrhage [Unknown]
  - Rash pruritic [Recovering/Resolving]
  - Movement disorder [Unknown]
  - Insomnia [Unknown]
  - Blood urine present [Unknown]
  - Pruritus [Not Recovered/Not Resolved]
  - Condition aggravated [Unknown]
  - Carbohydrate antigen 125 increased [Not Recovered/Not Resolved]
  - Muscle spasms [Recovered/Resolved]
  - Computerised tomogram abnormal [Unknown]
  - Metastases to liver [Unknown]
  - Dyspepsia [Unknown]
  - Metastases to diaphragm [Unknown]
  - Malignant neoplasm progression [Not Recovered/Not Resolved]
  - Headache [Unknown]

NARRATIVE: CASE EVENT DATE: 202106
